FAERS Safety Report 8980173 (Version 2)
Quarter: 2013Q1

REPORT INFORMATION
  Report Type: Spontaneous
  Country: TR (occurrence: TR)
  Receive Date: 20121221
  Receipt Date: 20130103
  Transmission Date: 20140127
  Serious: Yes (Hospitalization)
  Sender: FDA-Public Use
  Company Number: PHHY2012TR117248

PATIENT
  Age: 57 Year
  Sex: Male

DRUGS (2)
  1. RIBAVIRIN [Suspect]
     Indication: CONGO-CRIMEAN HAEMORRHAGIC FEVER
     Dosage: 2 G, LOADING DOSE
  2. RIBAVIRIN [Suspect]
     Dosage: 4 G,MAINTENANCE DOSE

REACTIONS (2)
  - Bradycardia [Recovered/Resolved]
  - Sinus bradycardia [Recovered/Resolved]
